FAERS Safety Report 18145226 (Version 1)
Quarter: 2020Q3

REPORT INFORMATION
  Report Type: Spontaneous
  Country: US (occurrence: US)
  Receive Date: 20200813
  Receipt Date: 20200813
  Transmission Date: 20201103
  Serious: Yes (Other)
  Sender: FDA-Public Use
  Company Number: None

PATIENT
  Age: 74 Year
  Sex: Female

DRUGS (8)
  1. POTASSIUM CL ER 20MEQ TAB [Concomitant]
     Dates: start: 20140903
  2. ALLOPURINOL 300MG TAB [Concomitant]
     Active Substance: ALLOPURINOL
     Dates: start: 20140505
  3. LOSARTAN/HCTZ 50?12.5MG TAB [Concomitant]
     Dates: start: 20140724
  4. SUMATRIPTAN 100MG TAB [Concomitant]
     Dates: start: 20140627
  5. ESCITALOPRAM 10MG TAB [Concomitant]
     Dates: start: 20140627
  6. TIZANIDINE. [Suspect]
     Active Substance: TIZANIDINE
     Route: 048
     Dates: start: 20200121, end: 20200812
  7. METOPROLOL ER 100MG TAB [Concomitant]
     Active Substance: METOPROLOL
     Dates: start: 20180507
  8. ROSUVASTATIN 20MG TAB [Concomitant]
     Dates: start: 20161027

REACTIONS (2)
  - Angle closure glaucoma [None]
  - Salivary gland calculus [None]

NARRATIVE: CASE EVENT DATE: 20200812
